FAERS Safety Report 10854853 (Version 1)
Quarter: 2015Q1

REPORT INFORMATION
  Report Type: Spontaneous
  Country: US (occurrence: US)
  Receive Date: 20150223
  Receipt Date: 20150223
  Transmission Date: 20150721
  Serious: No
  Sender: FDA-Public Use
  Company Number: US-CELGENEUS-163-21880-14071109

PATIENT
  Sex: Female
  Weight: 61.2 kg

DRUGS (3)
  1. REVLIMID [Suspect]
     Active Substance: LENALIDOMIDE
     Indication: PLASMA CELL MYELOMA
     Route: 048
     Dates: start: 201009, end: 2010
  2. REVLIMID [Suspect]
     Active Substance: LENALIDOMIDE
     Indication: NEOPLASM
     Route: 048
     Dates: start: 201012, end: 2011
  3. REVLIMID [Suspect]
     Active Substance: LENALIDOMIDE
     Route: 048
     Dates: start: 201312, end: 2014

REACTIONS (1)
  - Dyspepsia [Unknown]
